FAERS Safety Report 14553324 (Version 2)
Quarter: 2018Q2

REPORT INFORMATION
  Report Type: Report from Study
  Country: FR (occurrence: FR)
  Receive Date: 20180220
  Receipt Date: 20180525
  Transmission Date: 20180711
  Serious: Yes (Life-Threatening)
  Sender: FDA-Public Use
  Company Number: FR-PFIZER INC-2018068796

PATIENT

DRUGS (2)
  1. ZAVEDOS [Suspect]
     Active Substance: IDARUBICIN
     Indication: HEPATOCELLULAR CARCINOMA
     Dosage: 10 MG, UNK  (DAY 1 AND DAY 21)
     Route: 013
  2. LIPIODOL [Concomitant]
     Active Substance: ETHIODIZED OIL
     Indication: HEPATOCELLULAR CARCINOMA
     Dosage: 10 ML, UNK, (10 MG IDARUBICIN IN 5 ML WATER) (DAY 1 AND DAY 21)
     Route: 013

REACTIONS (3)
  - Hypokalaemia [Unknown]
  - Fatigue [Unknown]
  - Febrile neutropenia [Unknown]
